FAERS Safety Report 16255122 (Version 1)
Quarter: 2019Q2

REPORT INFORMATION
  Report Type: Spontaneous
  Country: US (occurrence: US)
  Receive Date: 20190430
  Receipt Date: 20190430
  Transmission Date: 20190711
  Serious: No
  Sender: FDA-Public Use
  Company Number: US-TEVA-2019-US-1042369

PATIENT
  Age: 58 Year
  Sex: Male
  Weight: 98 kg

DRUGS (4)
  1. PROAIR HFA [Suspect]
     Active Substance: ALBUTEROL SULFATE
     Dates: start: 20190415, end: 20190416
  2. BABY ASPIRIN [Concomitant]
     Active Substance: ASPIRIN
  3. MULTIVITAMIN [Concomitant]
     Active Substance: VITAMINS
  4. SYNTHROID [Concomitant]
     Active Substance: LEVOTHYROXINE SODIUM
     Indication: HYPOTHYROIDISM

REACTIONS (3)
  - Ageusia [Unknown]
  - Anosmia [Unknown]
  - Nasal congestion [Unknown]

NARRATIVE: CASE EVENT DATE: 20190416
